FAERS Safety Report 5650324-5 (Version None)
Quarter: 2008Q1

REPORT INFORMATION
  Report Type: 
  Country: None (occurrence: None)
  Receive Date: 20080304
  Receipt Date: 20080304
  Transmission Date: 20080703
  Serious: Yes (Life-Threatening)
  Sender: FDA-Public Use
  Company Number: None

PATIENT
  Sex: Female

DRUGS (1)
  1. XOLAIR [Suspect]
     Indication: ASTHMA
     Dosage: 300MG 5 WKS
     Dates: start: 20080216

REACTIONS (4)
  - CHEST DISCOMFORT [None]
  - FEELING JITTERY [None]
  - NO THERAPEUTIC RESPONSE [None]
  - SINUS HEADACHE [None]
